FAERS Safety Report 12308787 (Version 1)
Quarter: 2016Q2

REPORT INFORMATION
  Report Type: Spontaneous
  Country: US (occurrence: US)
  Receive Date: 20160427
  Receipt Date: 20160427
  Transmission Date: 20160815
  Serious: Yes (Other)
  Sender: FDA-Public Use
  Company Number: US-BEH-2016061481

PATIENT
  Sex: Female
  Weight: 62 kg

DRUGS (15)
  1. NORMAL SALINE [Concomitant]
     Active Substance: SODIUM CHLORIDE
  2. SOLU-MEDROL [Concomitant]
     Active Substance: METHYLPREDNISOLONE SODIUM SUCCINATE
  3. PRIVIGEN [Suspect]
     Active Substance: HUMAN IMMUNOGLOBULIN G
     Indication: IMMUNODEFICIENCY COMMON VARIABLE
     Dosage: PRIVIGEN 10 GM
     Route: 042
     Dates: start: 20150603
  4. SODIUM CHLORIDE. [Concomitant]
     Active Substance: SODIUM CHLORIDE
  5. PATANASE [Concomitant]
     Active Substance: OLOPATADINE HYDROCHLORIDE
  6. NICOTINE GUM [Concomitant]
     Active Substance: NICOTINE
  7. EPIPEN [Concomitant]
     Active Substance: EPINEPHRINE
  8. MOXIFLOXACIN. [Concomitant]
     Active Substance: MOXIFLOXACIN
  9. DIPHENHYDRAMINE. [Concomitant]
     Active Substance: DIPHENHYDRAMINE
  10. PSEUDOEPHEDRINE [Concomitant]
     Active Substance: PSEUDOEPHEDRINE
  11. VITAMIN D [Concomitant]
     Active Substance: CHOLECALCIFEROL
  12. CEPHALEXIN. [Concomitant]
     Active Substance: CEPHALEXIN
  13. QNASL [Concomitant]
     Active Substance: BECLOMETHASONE DIPROPIONATE
  14. LUNESTA [Concomitant]
     Active Substance: ESZOPICLONE
  15. CYANOCOBALAMIN. [Concomitant]
     Active Substance: CYANOCOBALAMIN

REACTIONS (1)
  - Staphylococcal infection [Unknown]
